FAERS Safety Report 17798821 (Version 2)
Quarter: 2020Q3

REPORT INFORMATION
  Report Type: Spontaneous
  Country: EG (occurrence: EG)
  Receive Date: 20200518
  Receipt Date: 20200702
  Transmission Date: 20201102
  Serious: Yes (Hospitalization, Other)
  Sender: FDA-Public Use
  Company Number: EG-PUMA BIOTECHNOLOGY, LTD.-2020EG002678

PATIENT
  Age: 58 Year
  Sex: Female

DRUGS (3)
  1. KADCYLA [Suspect]
     Active Substance: ADO-TRASTUZUMAB EMTANSINE
     Indication: BREAST CANCER METASTATIC
     Dosage: 260 MG, CYCLICAL(1/21).
     Route: 042
     Dates: start: 2020, end: 20200504
  2. NERLYNX [Suspect]
     Active Substance: NERATINIB
     Indication: BREAST CANCER METASTATIC
     Dosage: 120 MG, QD (1/DAY)
     Route: 048
     Dates: start: 2020, end: 20200504
  3. NERLYNX [Suspect]
     Active Substance: NERATINIB
     Indication: OFF LABEL USE

REACTIONS (7)
  - Thrombocytopenia [Recovering/Resolving]
  - Lymphopenia [Unknown]
  - Hospitalisation [Unknown]
  - Normochromic normocytic anaemia [Unknown]
  - Prescribed underdose [Unknown]
  - Product use in unapproved indication [Unknown]
  - Off label use [Unknown]

NARRATIVE: CASE EVENT DATE: 2020
